FAERS Safety Report 8388457-5 (Version None)
Quarter: 2012Q2

REPORT INFORMATION
  Report Type: 
  Country: None (occurrence: None)
  Receive Date: 20120525
  Receipt Date: 20120514
  Transmission Date: 20120825
  Serious: Yes (Other)
  Sender: FDA-Public Use
  Company Number: IL-TEVA-339449ISR

PATIENT
  Age: 47 Year
  Sex: Male

DRUGS (4)
  1. GINCOSAN [Concomitant]
  2. COPAXONE [Suspect]
     Dates: start: 19971126
  3. ESCITALOPRAM [Concomitant]
  4. ATARAX [Concomitant]

REACTIONS (1)
  - MENINGIOMA [None]
